FAERS Safety Report 9003695 (Version 1)
Quarter: 2013Q1

REPORT INFORMATION
  Report Type: Spontaneous
  Country: US (occurrence: US)
  Receive Date: 20130108
  Receipt Date: 20130108
  Transmission Date: 20140127
  Serious: No
  Sender: FDA-Public Use
  Company Number: US-GLAXOSMITHKLINE-A0962729A

PATIENT
  Sex: Male

DRUGS (4)
  1. LOVAZA [Suspect]
     Dosage: 4G IN THE MORNING
     Route: 048
  2. METFORMIN [Concomitant]
  3. UNKNOWN MEDICATION [Concomitant]
  4. CRESTOR [Concomitant]

REACTIONS (5)
  - Dyspepsia [Unknown]
  - Abnormal sleep-related event [Unknown]
  - Headache [Unknown]
  - Faeces discoloured [Unknown]
  - Ill-defined disorder [Unknown]
